FAERS Safety Report 5104394-3 (Version None)
Quarter: 2006Q3

REPORT INFORMATION
  Report Type: 
  Country: None (occurrence: None)
  Receive Date: 20060908
  Receipt Date: 20060908
  Transmission Date: 20061208
  Serious: Yes (Other)
  Sender: FDA-Public Use
  Company Number: None

PATIENT
  Age: 30 Year
  Sex: Female
  Weight: 56.6996 kg

DRUGS (1)
  1. CLINDAMYCIN HCL [Suspect]
     Indication: DENTAL DISORDER PROPHYLAXIS
     Dosage: FOUR -4-  150MG CAPSULES   ONE TIME   PO
     Route: 048
     Dates: start: 20060906, end: 20060906

REACTIONS (3)
  - NAUSEA [None]
  - PRURITUS [None]
  - URTICARIA [None]
